FAERS Safety Report 9609719 (Version 2)
Quarter: 2013Q4

REPORT INFORMATION
  Report Type: Report from Study
  Country: TW (occurrence: TW)
  Receive Date: 20131009
  Receipt Date: 20131009
  Transmission Date: 20140711
  Serious: No
  Sender: FDA-Public Use
  Company Number: PHHY2013TW027981

PATIENT
  Age: 46 Year
  Sex: Female

DRUGS (11)
  1. AMN107 [Suspect]
     Indication: CHRONIC MYELOID LEUKAEMIA
     Dosage: 800 MG, UNK
     Dates: start: 20091201
  2. SENNOSIDE [Concomitant]
     Indication: CONSTIPATION
     Dates: start: 20100921, end: 20110110
  3. SENNOSIDE [Concomitant]
     Dosage: UNK
     Dates: start: 20110308, end: 20110406
  4. SENNOSIDE [Concomitant]
     Dosage: UNK
     Dates: start: 20110602, end: 20110727
  5. TACROLIMUS [Concomitant]
     Indication: HAEMORRHOIDS
     Dates: start: 20110111, end: 20120315
  6. METOCLOPRAMIDE [Concomitant]
     Indication: NAUSEA
     Dates: start: 20110605, end: 20110605
  7. METOCLOPRAMIDE [Concomitant]
     Indication: VOMITING
  8. STROCAIN [Concomitant]
     Indication: ABDOMINAL PAIN UPPER
     Dates: start: 20110605, end: 20110608
  9. KASCOAL [Concomitant]
     Indication: ABDOMINAL DISTENSION
     Dates: start: 20110605, end: 20110624
  10. MAGNESIUM OXIDE [Concomitant]
     Indication: CONSTIPATION
     Dates: start: 20110607, end: 20110624
  11. LIPITOR [Concomitant]
     Indication: HYPERLIPIDAEMIA
     Dates: start: 20120209, end: 20120404

REACTIONS (1)
  - Cough [Unknown]
